FAERS Safety Report 5906040-5 (Version None)
Quarter: 2008Q4

REPORT INFORMATION
  Report Type: 
  Country: None (occurrence: None)
  Receive Date: 20081002
  Receipt Date: 20050113
  Transmission Date: 20090506
  Serious: Yes (Other)
  Sender: FDA-Public Use
  Company Number: US-ASTRAZENECA-2008UW20798

PATIENT

DRUGS (1)
  1. IRESSA [Suspect]
     Route: 048

REACTIONS (1)
  - RENAL FAILURE CHRONIC [None]
